FAERS Safety Report 9991507 (Version 2)
Quarter: 2014Q1

REPORT INFORMATION
  Report Type: Report from Study
  Country: CA (occurrence: CA)
  Receive Date: 20140310
  Receipt Date: 20140310
  Transmission Date: 20141002
  Serious: Yes (Hospitalization)
  Sender: FDA-Public Use
  Company Number: CA-ABBVIE-12P-028-0975878-00

PATIENT
  Sex: Female
  Weight: 77.63 kg

DRUGS (4)
  1. HUMIRA [Suspect]
     Indication: PSORIASIS
     Route: 058
     Dates: start: 20120601, end: 20120819
  2. HUMIRA [Suspect]
     Route: 058
     Dates: start: 20120825
  3. DOVOBET [Concomitant]
     Indication: PRODUCT USED FOR UNKNOWN INDICATION
  4. STELARA [Concomitant]
     Indication: PRODUCT USED FOR UNKNOWN INDICATION

REACTIONS (7)
  - Fatigue [Recovered/Resolved]
  - Dehydration [Recovered/Resolved]
  - Vomiting [Recovered/Resolved]
  - Fatigue [Unknown]
  - Blood glucose increased [Recovered/Resolved]
  - Nausea [Unknown]
  - Vomiting [Unknown]
